FAERS Safety Report 4935015-8 (Version None)
Quarter: 2006Q1

REPORT INFORMATION
  Report Type: 
  Country: None (occurrence: None)
  Receive Date: 20060306
  Receipt Date: 20060306
  Transmission Date: 20060701
  Serious: Yes (Hospitalization)
  Sender: FDA-Public Use
  Company Number: None

PATIENT
  Age: 88 Year
  Sex: Male
  Weight: 79.4 kg

DRUGS (1)
  1. SPIRIVA [Suspect]
     Dosage: 1 PUFF/DAY
     Dates: start: 20060126, end: 20060130

REACTIONS (2)
  - BRONCHOSPASM [None]
  - CHEST DISCOMFORT [None]
